FAERS Safety Report 8193907-3 (Version None)
Quarter: 2012Q1

REPORT INFORMATION
  Report Type: 
  Country: None (occurrence: None)
  Receive Date: 20120308
  Receipt Date: 20120302
  Transmission Date: 20120608
  Serious: Yes (Death, Other)
  Sender: FDA-Public Use
  Company Number: DE-ELI_LILLY_AND_COMPANY-DE201203000915

PATIENT
  Sex: Male

DRUGS (2)
  1. ALIMTA [Suspect]
     Indication: LUNG ADENOCARCINOMA
  2. CARBOPLATIN [Concomitant]

REACTIONS (3)
  - TREATMENT NONCOMPLIANCE [None]
  - DEATH [None]
  - PANCYTOPENIA [None]
